FAERS Safety Report 12348661 (Version 1)
Quarter: 2016Q2

REPORT INFORMATION
  Report Type: Spontaneous
  Country: TW (occurrence: TW)
  Receive Date: 20160509
  Receipt Date: 20160509
  Transmission Date: 20160815
  Serious: Yes (Other)
  Sender: FDA-Public Use
  Company Number: TW-AKORN PHARMACEUTICALS-2016AKN00254

PATIENT
  Age: 68 Year
  Sex: Male

DRUGS (1)
  1. TRIAMCINOLONE ACETONIDE. [Suspect]
     Active Substance: TRIAMCINOLONE ACETONIDE
     Indication: DIABETIC RETINAL OEDEMA
     Dosage: 40 MG, ONCE
     Route: 031

REACTIONS (1)
  - Ocular hypertension [Recovered/Resolved]
